FAERS Safety Report 11528178 (Version 1)
Quarter: 2015Q3

REPORT INFORMATION
  Report Type: Spontaneous
  Country: US (occurrence: US)
  Receive Date: 20150921
  Receipt Date: 20150921
  Transmission Date: 20151125
  Serious: No
  Sender: FDA-Public Use
  Company Number: US-TEVA-516213USA

PATIENT
  Sex: Female

DRUGS (1)
  1. CARBAMAZEPINE. [Suspect]
     Active Substance: CARBAMAZEPINE
     Indication: FEELING OF RELAXATION
     Dosage: 2-3 QHS

REACTIONS (5)
  - Sensory disturbance [Unknown]
  - Pruritus generalised [Unknown]
  - Psychomotor hyperactivity [Unknown]
  - Hot flush [Unknown]
  - Tachyphrenia [Unknown]
